FAERS Safety Report 6217856-2 (Version None)
Quarter: 2009Q2

REPORT INFORMATION
  Report Type: 
  Country: None (occurrence: None)
  Receive Date: 20090608
  Receipt Date: 20090602
  Transmission Date: 20091009
  Serious: Yes (Death, Other)
  Sender: FDA-Public Use
  Company Number: US-ROCHE-625598

PATIENT
  Sex: Female

DRUGS (6)
  1. XELODA [Suspect]
     Indication: HEPATIC NEOPLASM MALIGNANT
     Dosage: DOSE: 3 TABLETS IN AM AND 3 IN PM, OTHER INDICATION: NECK TUMOUR
     Route: 048
     Dates: start: 20090322
  2. ASPIRIN [Concomitant]
     Indication: NECK PAIN
  3. OXYCODONE HCL AND ACETAMINOPHEN [Concomitant]
     Indication: PAIN
     Dosage: FREQUENCY EVERY 4 TO 6 HOURS AS NEEDED
     Route: 048
  4. HYDROCODONE BITARTRATE + ACETAMINOPHEN [Concomitant]
     Indication: PAIN
     Dosage: TAKEN AS NEEDED
     Route: 048
  5. COMPAZINE [Concomitant]
     Indication: NAUSEA
     Dosage: TAKEN AS NEEDED
     Route: 048
  6. EMLA [Concomitant]
     Dosage: 1 TOPICAL APPLICATION AS NEEDED
     Route: 061

REACTIONS (6)
  - DEATH [None]
  - DIARRHOEA [None]
  - DISEASE PROGRESSION [None]
  - HYPOPHAGIA [None]
  - NAUSEA [None]
  - PARAESTHESIA [None]
